FAERS Safety Report 9856696 (Version 2)
Quarter: 2014Q1

REPORT INFORMATION
  Report Type: Report from Study
  Country: US (occurrence: US)
  Receive Date: 20140130
  Receipt Date: 20140213
  Transmission Date: 20141002
  Serious: Yes (Hospitalization)
  Sender: FDA-Public Use
  Company Number: US-GLAXOSMITHKLINE-A1058755A

PATIENT
  Age: 43 Year
  Sex: Male
  Weight: 57.4 kg

DRUGS (3)
  1. GSK2141795 [Suspect]
     Indication: MALIGNANT MELANOMA
     Route: 048
  2. TRAMETINIB [Suspect]
     Indication: MALIGNANT MELANOMA
     Route: 048
  3. BLOOD TRANSFUSION [Concomitant]
     Indication: FATIGUE
     Route: 042

REACTIONS (2)
  - Diarrhoea [Recovered/Resolved]
  - Dehydration [Recovered/Resolved]
